FAERS Safety Report 23616974 (Version 1)
Quarter: 2024Q1

REPORT INFORMATION
  Report Type: Spontaneous
  Country: CN (occurrence: CN)
  Receive Date: 20240311
  Receipt Date: 20240311
  Transmission Date: 20240410
  Serious: Yes (Hospitalization, Other)
  Sender: FDA-Public Use
  Company Number: CN-BRISTOL-MYERS SQUIBB COMPANY-2024-036558

PATIENT
  Age: 37 Year
  Sex: Female
  Weight: 61 kg

DRUGS (3)
  1. NIVOLUMAB [Suspect]
     Active Substance: NIVOLUMAB
     Indication: Gastric cancer
     Dosage: DRUG USE-TIMES: 1?DRUG USE-DAYS: 1
     Route: 041
     Dates: start: 20231205, end: 20240116
  2. OXALIPLATIN [Concomitant]
     Active Substance: OXALIPLATIN
     Indication: Gastric cancer
     Route: 041
     Dates: start: 20231205, end: 20240220
  3. TEGAFUR [Concomitant]
     Active Substance: TEGAFUR
     Indication: Gastric cancer
     Dosage: TAKEN ORALLY ONCE A DAY ON DAYS 1-14
     Route: 048
     Dates: start: 20231205, end: 20240220

REACTIONS (3)
  - Immune-mediated dermatitis [Recovering/Resolving]
  - Vision blurred [Recovering/Resolving]
  - Lacrimation increased [Recovering/Resolving]

NARRATIVE: CASE EVENT DATE: 20240115
